FAERS Safety Report 4471142-X (Version None)
Quarter: 2004Q4

REPORT INFORMATION
  Report Type: 
  Country: None (occurrence: None)
  Receive Date: 20041008
  Receipt Date: 20041004
  Transmission Date: 20050328
  Serious: Yes (Life-Threatening)
  Sender: FDA-Public Use
  Company Number: 2004CG01974

PATIENT
  Age: 1 Day
  Sex: Female
  Weight: 2.83 kg

DRUGS (4)
  1. MARCAINE [Suspect]
     Indication: SPINAL ANAESTHESIA
     Dates: start: 20040715, end: 20040715
  2. MARCAINE [Suspect]
     Indication: SPINAL ANAESTHESIA
     Dates: start: 20040715, end: 20040715
  3. SUFENTA [Suspect]
     Dates: start: 20040715, end: 20040715
  4. SUFENTA [Suspect]
     Dates: start: 20040715, end: 20040715

REACTIONS (5)
  - BRADYCARDIA NEONATAL [None]
  - DRUG EXPOSURE DURING PREGNANCY [None]
  - DRUG EXPOSURE VIA BREAST MILK [None]
  - HYPOTONIA NEONATAL [None]
  - MALAISE [None]
